FAERS Safety Report 8676216 (Version 3)
Quarter: 2013Q4

REPORT INFORMATION
  Report Type: Spontaneous
  Country: US (occurrence: US)
  Receive Date: 20120720
  Receipt Date: 20131101
  Transmission Date: 20140711
  Serious: Yes (Hospitalization)
  Sender: FDA-Public Use
  Company Number: US-009507513-2012SP035659

PATIENT
  Sex: Male

DRUGS (4)
  1. VICTRELIS [Suspect]
     Indication: CHRONIC HEPATITIS C
     Dosage: 800 MG, Q8H
     Route: 048
     Dates: start: 20120310, end: 20120612
  2. PEGASYS [Concomitant]
     Indication: HEPATITIS C
     Dosage: 180 ?G, QW
     Route: 058
     Dates: start: 20120213, end: 20120612
  3. RIBASPHERE [Concomitant]
     Indication: HEPATITIS C
     Dosage: 3 DF, BID
     Route: 048
     Dates: start: 20120213, end: 20120612
  4. RIBASPHERE [Concomitant]
     Dosage: 600 MG, QD

REACTIONS (3)
  - Anaemia [Recovering/Resolving]
  - Oedema [Unknown]
  - Fatigue [Unknown]
